FAERS Safety Report 9405314 (Version 1)
Quarter: 2013Q3

REPORT INFORMATION
  Report Type: Spontaneous
  Country: FR (occurrence: FR)
  Receive Date: 20130717
  Receipt Date: 20130717
  Transmission Date: 20140515
  Serious: Yes (Other)
  Sender: FDA-Public Use
  Company Number: FR-TEVA-419184ISR

PATIENT
  Age: 24 Year
  Sex: Female

DRUGS (3)
  1. LEELOO [Suspect]
     Indication: ORAL CONTRACEPTION
     Dosage: 1 DOSAGE FORMS DAILY;
     Route: 048
     Dates: start: 201303, end: 201306
  2. KESTIN [Concomitant]
     Dosage: 1 DOSAGE FORMS DAILY; FROM A LONG TIME
     Route: 048
  3. NASACORT [Concomitant]
     Dosage: FROM A LONG TIME
     Route: 045

REACTIONS (4)
  - Thrombophlebitis superficial [Recovered/Resolved]
  - Pregnancy on oral contraceptive [Unknown]
  - Toxoplasmosis [Unknown]
  - Drug dose omission [Unknown]
